FAERS Safety Report 16174558 (Version 1)
Quarter: 2019Q2

REPORT INFORMATION
  Report Type: Spontaneous
  Country: US (occurrence: US)
  Receive Date: 20190409
  Receipt Date: 20190409
  Transmission Date: 20190711
  Serious: Yes (Hospitalization, Other)
  Sender: FDA-Public Use
  Company Number: US-RECORDATI RARE DISEASES INC.-US-R13005-19-00091

PATIENT
  Age: 49 Year
  Sex: Female

DRUGS (1)
  1. METHAMPHETAMINE [Suspect]
     Active Substance: METHAMPHETAMINE
     Indication: PRODUCT USED FOR UNKNOWN INDICATION
     Route: 065

REACTIONS (8)
  - Tubo-ovarian abscess [Unknown]
  - Septic shock [Unknown]
  - Pelvic abscess [Unknown]
  - Abdominal abscess [Unknown]
  - Lung abscess [Unknown]
  - Sepsis [Unknown]
  - Drug abuse [Unknown]
  - Respiratory failure [Unknown]
